FAERS Safety Report 25613149 (Version 2)
Quarter: 2025Q3

REPORT INFORMATION
  Report Type: Spontaneous
  Country: US (occurrence: US)
  Receive Date: 20250728
  Receipt Date: 20250731
  Transmission Date: 20251021
  Serious: No
  Sender: ALKERMES
  Company Number: US-ALKERMES INC.-ALK-2025-001959

PATIENT
  Sex: Female

DRUGS (3)
  1. LYBALVI [Suspect]
     Active Substance: OLANZAPINE\SAMIDORPHAN L-MALATE
     Indication: Bipolar disorder
     Route: 048
     Dates: start: 20250703
  2. LYBALVI [Suspect]
     Active Substance: OLANZAPINE\SAMIDORPHAN L-MALATE
     Route: 048
     Dates: start: 20250703
  3. INGREZZA [Concomitant]
     Active Substance: VALBENAZINE DITOSYLATE
     Indication: Tardive dyskinesia
     Route: 065

REACTIONS (2)
  - Stereotypy [Unknown]
  - Dyskinesia [Unknown]

NARRATIVE: CASE EVENT DATE: 20250101
